FAERS Safety Report 8353000-3 (Version None)
Quarter: 2012Q2

REPORT INFORMATION
  Report Type: 
  Country: None (occurrence: None)
  Receive Date: 20120511
  Receipt Date: 20101117
  Transmission Date: 20120825
  Serious: No
  Sender: FDA-Public Use
  Company Number: US-TEVA-2010006022

PATIENT
  Sex: Female
  Weight: 49.94 kg

DRUGS (9)
  1. PROZAC [Concomitant]
     Indication: DEPRESSION
  2. XANAX [Concomitant]
     Indication: DEPRESSION
  3. METFORMIN HCL [Concomitant]
     Indication: INSULIN RESISTANCE
     Dates: start: 20050101
  4. ASPIRIN [Concomitant]
     Indication: PROPHYLAXIS
  5. CEPHALEXIN [Concomitant]
     Indication: CHRONIC OBSTRUCTIVE PULMONARY DISEASE
  6. BUSPAR [Concomitant]
     Indication: DEPRESSION
     Dates: start: 20060101
  7. PREDNISONE [Concomitant]
     Indication: CHRONIC OBSTRUCTIVE PULMONARY DISEASE
  8. NUVIGIL [Suspect]
     Indication: SLEEP DISORDER
     Dosage: 500 MILLIGRAM;
     Route: 048
     Dates: start: 20090101
  9. INHALERS/ALBUTEROL [Concomitant]
     Indication: CHRONIC OBSTRUCTIVE PULMONARY DISEASE

REACTIONS (1)
  - DRUG PRESCRIBING ERROR [None]
